FAERS Safety Report 9361102 (Version 2)
Quarter: 2013Q3

REPORT INFORMATION
  Report Type: Spontaneous
  Country: US (occurrence: US)
  Receive Date: 20130621
  Receipt Date: 20130723
  Transmission Date: 20140515
  Serious: No
  Sender: FDA-Public Use
  Company Number: US-B.I. PHARMACEUTICALS,INC./RIDGEFIELD-2013-BI-16925BP

PATIENT
  Sex: Female

DRUGS (1)
  1. ZANTAC COOL MINT (TABLETS) [Suspect]
     Route: 048
     Dates: start: 2013, end: 2013

REACTIONS (3)
  - Abdominal discomfort [Recovered/Resolved]
  - Product quality issue [Recovered/Resolved]
  - Product quality issue [Recovered/Resolved]
